FAERS Safety Report 16310426 (Version 1)
Quarter: 2019Q2

REPORT INFORMATION
  Report Type: Spontaneous
  Country: IT (occurrence: IT)
  Receive Date: 20190514
  Receipt Date: 20190514
  Transmission Date: 20190711
  Serious: Yes (Hospitalization)
  Sender: FDA-Public Use
  Company Number: IT-JNJFOC-20190512871

PATIENT
  Age: 57 Year
  Sex: Male
  Weight: 74 kg

DRUGS (3)
  1. DEXAMETHASONE. [Suspect]
     Active Substance: DEXAMETHASONE
     Indication: PLASMA CELL MYELOMA
     Route: 048
     Dates: start: 20181029, end: 20190415
  2. DARZALEX [Suspect]
     Active Substance: DARATUMUMAB
     Indication: PLASMA CELL MYELOMA
     Route: 065
     Dates: start: 20190415, end: 20190415
  3. REVLIMID [Suspect]
     Active Substance: LENALIDOMIDE
     Indication: PLASMA CELL MYELOMA
     Route: 065
     Dates: start: 20181029, end: 20190315

REACTIONS (3)
  - Hypothyroidism [Recovering/Resolving]
  - Transaminases increased [Recovering/Resolving]
  - Autoimmune thyroiditis [Recovering/Resolving]

NARRATIVE: CASE EVENT DATE: 20190415
